FAERS Safety Report 12088228 (Version 1)
Quarter: 2016Q1

REPORT INFORMATION
  Report Type: Spontaneous
  Country: US (occurrence: None)
  Receive Date: 20160216
  Receipt Date: 20160216
  Transmission Date: 20160526
  Serious: Yes (Disabling)
  Sender: FDA-Public Use
  Company Number: None

PATIENT
  Age: 73 Year
  Sex: Female
  Weight: 113.4 kg

DRUGS (18)
  1. METEOR IN [Concomitant]
  2. TAMOXIFEN [Concomitant]
     Active Substance: TAMOXIFEN
  3. ATENOLOL. [Concomitant]
     Active Substance: ATENOLOL
  4. LEVOTHYROXIN [Concomitant]
     Active Substance: LEVOTHYROXINE
  5. ALLOPURINOL. [Concomitant]
     Active Substance: ALLOPURINOL
  6. ZOMETA [Concomitant]
     Active Substance: ZOLEDRONIC ACID
  7. FUROSEMIDE. [Concomitant]
     Active Substance: FUROSEMIDE
  8. 81 MG BABY ASPIRIN [Concomitant]
  9. CALCIUM PLUS D3 [Concomitant]
  10. GLIMEPIRIDE. [Concomitant]
     Active Substance: GLIMEPIRIDE
  11. LOSARTON [Concomitant]
  12. LOVASTATIN. [Concomitant]
     Active Substance: LOVASTATIN
  13. D-3 [Concomitant]
     Active Substance: CHOLECALCIFEROL
  14. ADVAIR HFA [Concomitant]
     Active Substance: FLUTICASONE PROPIONATE\SALMETEROL XINAFOATE
  15. AZITHROMYCIN ANHYDROUS. [Suspect]
     Active Substance: AZITHROMYCIN ANHYDROUS
     Indication: RESPIRATORY TRACT CONGESTION
     Dosage: 2 PILLS FIRST DAY 1 PILL PER DA ONCE DAILY TAKEN BY MOUTH
     Route: 048
  16. MONTELUKAST [Concomitant]
     Active Substance: MONTELUKAST SODIUM
  17. VITAMIN B12 [Concomitant]
     Active Substance: CYANOCOBALAMIN
  18. FISH OIL [Concomitant]
     Active Substance: FISH OIL

REACTIONS (1)
  - Deafness unilateral [None]

NARRATIVE: CASE EVENT DATE: 20160128
